FAERS Safety Report 14537272 (Version 1)
Quarter: 2018Q1

REPORT INFORMATION
  Report Type: Spontaneous
  Country: FR (occurrence: FR)
  Receive Date: 20180215
  Receipt Date: 20180215
  Transmission Date: 20180509
  Serious: Yes (Other)
  Sender: FDA-Public Use
  Company Number: FR-PFIZER INC-2018060401

PATIENT
  Age: 6 Year
  Sex: Female

DRUGS (5)
  1. CARBOPLATINE HOSPIRA [Suspect]
     Active Substance: CARBOPLATIN
     Indication: GANGLIOGLIOMA
     Dosage: UNK UNK, CYCLIC
     Route: 041
     Dates: start: 20171122, end: 20171122
  2. VINBLASTINE [Concomitant]
     Active Substance: VINBLASTINE
     Indication: GANGLIOGLIOMA
     Dosage: UNK, CYCLIC
     Route: 041
     Dates: start: 20171122, end: 20171122
  3. KEPPRA [Concomitant]
     Active Substance: LEVETIRACETAM
     Dosage: 6 ML, DAILY
     Route: 048
  4. BUCCOLAM [Concomitant]
     Active Substance: MIDAZOLAM HYDROCHLORIDE
     Dosage: UNK
     Route: 048
  5. TRILEPTAL [Concomitant]
     Active Substance: OXCARBAZEPINE
     Dosage: 6 ML, 2X/DAY
     Route: 048

REACTIONS (5)
  - Abdominal pain [Recovered/Resolved]
  - Product use in unapproved indication [Unknown]
  - Erythema [Recovered/Resolved]
  - Oropharyngeal pain [Recovered/Resolved]
  - Lip swelling [Recovered/Resolved]

NARRATIVE: CASE EVENT DATE: 20171122
